FAERS Safety Report 14371266 (Version 2)
Quarter: 2018Q1

REPORT INFORMATION
  Report Type: Spontaneous
  Country: US (occurrence: US)
  Receive Date: 20180110
  Receipt Date: 20180119
  Transmission Date: 20180509
  Serious: Yes (Other)
  Sender: FDA-Public Use
  Company Number: US-ASTRAZENECA-2018SE01983

PATIENT
  Age: 865 Month
  Sex: Male
  Weight: 82.1 kg

DRUGS (9)
  1. GABAPENTIN. [Concomitant]
     Active Substance: GABAPENTIN
     Indication: PAIN
     Route: 048
  2. CBD TYPE OF CANNABIS [Interacting]
     Active Substance: CANNABIDIOL
     Indication: SLEEP DISORDER
     Route: 048
  3. OXYCODONE [Concomitant]
     Active Substance: OXYCODONE
     Indication: PAIN
     Dosage: 10.0MG AS REQUIRED
     Route: 048
  4. CBD TYPE OF CANNABIS [Interacting]
     Active Substance: CANNABIDIOL
     Indication: NAUSEA
     Route: 048
  5. TAGRISSO [Suspect]
     Active Substance: OSIMERTINIB
     Indication: LUNG ADENOCARCINOMA
     Route: 048
     Dates: start: 201708, end: 20171222
  6. CBD TYPE OF CANNABIS [Interacting]
     Active Substance: CANNABIDIOL
     Indication: PAIN
     Route: 048
  7. TAMSULOSIN [Concomitant]
     Active Substance: TAMSULOSIN
     Indication: URINARY RETENTION
     Route: 048
  8. FINASTERIDE. [Concomitant]
     Active Substance: FINASTERIDE
     Indication: BENIGN PROSTATIC HYPERPLASIA
     Route: 048
  9. DENOSUMAB [Concomitant]
     Active Substance: DENOSUMAB
     Indication: METASTASES TO BONE
     Route: 058
     Dates: start: 201507

REACTIONS (3)
  - Pneumonitis [Recovering/Resolving]
  - Rash [Unknown]
  - Drug interaction [Unknown]

NARRATIVE: CASE EVENT DATE: 201507
